FAERS Safety Report 8415766-3 (Version None)
Quarter: 2012Q2

REPORT INFORMATION
  Report Type: 
  Country: None (occurrence: None)
  Receive Date: 20120606
  Receipt Date: 20120530
  Transmission Date: 20120825
  Serious: Yes (Other)
  Sender: FDA-Public Use
  Company Number: US-ASTELLAS-2012US005142

PATIENT
  Sex: Female

DRUGS (7)
  1. LIPITOR [Concomitant]
     Indication: BLOOD CHOLESTEROL
     Dosage: 10 MG, UID/QD
     Route: 048
  2. FLONASE [Concomitant]
     Indication: HYPERSENSITIVITY
     Dosage: UNK
     Route: 045
  3. DYAZIDE [Concomitant]
     Indication: BLOOD PRESSURE
     Dosage: 37.5 MG, UID/QD
     Route: 048
  4. CELEBREX [Concomitant]
     Indication: ANTIINFLAMMATORY THERAPY
  5. SINGULAIR [Concomitant]
     Indication: HYPERSENSITIVITY
     Dosage: 10 MG, UID/QD
     Route: 048
  6. VESICARE [Suspect]
     Indication: PRODUCT USED FOR UNKNOWN INDICATION
     Dosage: 10 MG, UID/QD
     Route: 048
  7. CELEBREX [Concomitant]
     Indication: PAIN
     Dosage: 200 MG, UID/QD
     Route: 048

REACTIONS (1)
  - DEMENTIA [None]
